FAERS Safety Report 12115284 (Version 1)
Quarter: 2016Q1

REPORT INFORMATION
  Report Type: Spontaneous
  Country: CL (occurrence: CL)
  Receive Date: 20160225
  Receipt Date: 20160225
  Transmission Date: 20160526
  Serious: Yes (Hospitalization)
  Sender: FDA-Public Use
  Company Number: CL-ASTRAZENECA-2016SE17549

PATIENT
  Sex: Male

DRUGS (1)
  1. NEXIUM [Suspect]
     Active Substance: ESOMEPRAZOLE MAGNESIUM
     Indication: ANAL HAEMORRHAGE
     Dosage: 1 BEFORE BREAKFAST 1 BEFORE LUNCH
     Route: 048
     Dates: start: 201601

REACTIONS (2)
  - Product use issue [Unknown]
  - Anal haemorrhage [Not Recovered/Not Resolved]

NARRATIVE: CASE EVENT DATE: 201601
